FAERS Safety Report 24137029 (Version 1)
Quarter: 2024Q3

REPORT INFORMATION
  Report Type: Spontaneous
  Country: SE (occurrence: SE)
  Receive Date: 20240725
  Receipt Date: 20240725
  Transmission Date: 20241017
  Serious: Yes (Hospitalization)
  Sender: BAYER
  Company Number: None

PATIENT
  Age: 28 Year
  Sex: Female

DRUGS (1)
  1. LEVONORGESTREL [Suspect]
     Active Substance: LEVONORGESTREL
     Indication: Contraception
     Dosage: 14?G/DAY
     Route: 015
     Dates: start: 20220905, end: 20240714

REACTIONS (3)
  - Ectopic pregnancy with contraceptive device [Recovered/Resolved]
  - Salpingectomy [Recovered/Resolved]
  - Drug ineffective [Recovered/Resolved]

NARRATIVE: CASE EVENT DATE: 20240713
